FAERS Safety Report 5206658-1 (Version None)
Quarter: 2006Q4

REPORT INFORMATION
  Report Type: 
  Country: None (occurrence: None)
  Receive Date: 20061026
  Receipt Date: 20060711
  Transmission Date: 20070319
  Serious: No
  Sender: FDA-Public Use
  Company Number: 2006087971

PATIENT
  Age: 53 Year
  Sex: Male
  Weight: 68.0396 kg

DRUGS (2)
  1. LYRICA [Suspect]
     Indication: PAIN
     Dosage: 500 MG (3 IN 1 D); UNK
     Dates: start: 20060101, end: 20060701
  2. INDOCIN [Concomitant]

REACTIONS (8)
  - DRUG WITHDRAWAL SYNDROME [None]
  - FOOD CRAVING [None]
  - HEADACHE [None]
  - HYPERHIDROSIS [None]
  - NAUSEA [None]
  - NECK PAIN [None]
  - VOMITING [None]
  - WEIGHT INCREASED [None]
